FAERS Safety Report 10062240 (Version 1)
Quarter: 2014Q2

REPORT INFORMATION
  Report Type: Spontaneous
  Country: NZ (occurrence: NZ)
  Receive Date: 20140407
  Receipt Date: 20140407
  Transmission Date: 20141212
  Serious: Yes (Hospitalization)
  Sender: FDA-Public Use
  Company Number: NZ-MYLANLABS-2014S1007042

PATIENT
  Age: 61 Year
  Sex: Female

DRUGS (1)
  1. SODIUM TETRADECYL SULFATE [Suspect]
     Indication: VARICOSE VEIN
     Dosage: 10ML OF MICROBUBBLE FOAM
     Route: 065

REACTIONS (1)
  - Acute myocardial infarction [Unknown]
